FAERS Safety Report 7655986-9 (Version None)
Quarter: 2011Q3

REPORT INFORMATION
  Report Type: 
  Country: None (occurrence: None)
  Receive Date: 20110804
  Receipt Date: 20110727
  Transmission Date: 20111222
  Serious: Yes (Hospitalization, Other)
  Sender: FDA-Public Use
  Company Number: CO-JNJFOC-20110500671

PATIENT
  Age: 23 Year
  Sex: Male

DRUGS (3)
  1. RISPERDAL [Suspect]
     Indication: PRODUCT USED FOR UNKNOWN INDICATION
     Route: 048
     Dates: start: 20110323, end: 20110422
  2. RISPERDAL CONSTA [Suspect]
     Indication: MENTAL DISORDER DUE TO A GENERAL MEDICAL CONDITION
     Route: 030
  3. RISPERDAL CONSTA [Suspect]
     Route: 030
     Dates: start: 20110323

REACTIONS (5)
  - EXTRAPYRAMIDAL DISORDER [None]
  - TACHYCARDIA [None]
  - CONVULSION [None]
  - OFF LABEL USE [None]
  - AGGRESSION [None]
